FAERS Safety Report 7500944-8 (Version None)
Quarter: 2011Q2

REPORT INFORMATION
  Report Type: 
  Country: None (occurrence: None)
  Receive Date: 20110524
  Receipt Date: 20110519
  Transmission Date: 20111010
  Serious: Yes (Other)
  Sender: FDA-Public Use
  Company Number: US-PFIZER INC-2011108411

PATIENT
  Sex: Male
  Weight: 87.982 kg

DRUGS (6)
  1. AMBIEN [Concomitant]
     Indication: SLEEP DISORDER
     Dosage: UNK
  2. METHOCARBAMOL [Concomitant]
     Indication: BACK DISORDER
     Dosage: UNK
     Dates: start: 19980101
  3. SIMVASTATIN [Concomitant]
     Indication: BLOOD CHOLESTEROL INCREASED
     Dosage: UNK
  4. LYRICA [Suspect]
     Indication: INTERVERTEBRAL DISC DEGENERATION
     Dosage: 150 MG (75 MG TWO ORAL CAPSULE), 2X/DAY
     Route: 048
     Dates: start: 20110401
  5. REQUIP [Concomitant]
     Indication: RESTLESS LEGS SYNDROME
     Dosage: UNK
  6. ZOLOFT [Concomitant]
     Indication: DEPRESSION
     Dosage: UNK

REACTIONS (2)
  - VISUAL IMPAIRMENT [None]
  - DYSPNOEA [None]
